FAERS Safety Report 4444240-4 (Version None)
Quarter: 2004Q3

REPORT INFORMATION
  Report Type: 
  Country: None (occurrence: None)
  Receive Date: 20040902
  Receipt Date: 20040816
  Transmission Date: 20050211
  Serious: Yes (Hospitalization, Other)
  Sender: FDA-Public Use
  Company Number: USA030639041

PATIENT
  Age: 45 Year
  Sex: Female

DRUGS (1)
  1. PROZAC [Suspect]
     Indication: DEPRESSION
     Dosage: 20 MG/1 DAY
     Dates: start: 20030901

REACTIONS (6)
  - ABDOMINAL ADHESIONS [None]
  - AMENORRHOEA [None]
  - FALLOPIAN TUBE DISORDER [None]
  - OVARIAN DISORDER [None]
  - OVARIAN ENLARGEMENT [None]
  - UTERINE ENLARGEMENT [None]
